FAERS Safety Report 8587150-3 (Version None)
Quarter: 2012Q3

REPORT INFORMATION
  Report Type: 
  Country: None (occurrence: None)
  Receive Date: 20120810
  Receipt Date: 20120802
  Transmission Date: 20120928
  Serious: Yes (Death, Hospitalization)
  Sender: FDA-Public Use
  Company Number: US-009507513-1208USA002910

PATIENT

DRUGS (1)
  1. ZETIA [Suspect]
     Dosage: 10 MG, QD
     Route: 048

REACTIONS (2)
  - BRAIN NEOPLASM [None]
  - ADVERSE EVENT [None]
